FAERS Safety Report 12402190 (Version 2)
Quarter: 2016Q2

REPORT INFORMATION
  Report Type: Spontaneous
  Country: US (occurrence: US)
  Receive Date: 20160525
  Receipt Date: 20160527
  Transmission Date: 20160815
  Serious: No
  Sender: FDA-Public Use
  Company Number: US-SA-2016SA012634

PATIENT
  Age: 61 Year
  Sex: Male

DRUGS (2)
  1. METFORMIN [Concomitant]
     Active Substance: METFORMIN HYDROCHLORIDE
  2. LANTUS [Suspect]
     Active Substance: INSULIN GLARGINE
     Dosage: DOSE - 14-18UNITS
     Route: 065
     Dates: start: 2012

REACTIONS (4)
  - Therapeutic response decreased [Unknown]
  - Blood glucose abnormal [Unknown]
  - Incorrect product storage [Unknown]
  - Pain [Unknown]
